FAERS Safety Report 8612581-2 (Version None)
Quarter: 2012Q3

REPORT INFORMATION
  Report Type: 
  Country: None (occurrence: None)
  Receive Date: 20120822
  Receipt Date: 20111017
  Transmission Date: 20120928
  Serious: No
  Sender: FDA-Public Use
  Company Number: US-ASTRAZENECA-2011SE62449

PATIENT
  Age: 77 Year
  Sex: Female
  Weight: 72.6 kg

DRUGS (7)
  1. SYMBICORT [Suspect]
     Indication: CHRONIC OBSTRUCTIVE PULMONARY DISEASE
     Dosage: 160/4.5 MCG
     Route: 055
  2. AZITHROMYCIN [Concomitant]
  3. LORATADINE [Concomitant]
  4. NEXIUM [Concomitant]
     Route: 048
  5. TRIAMETRIAN [Concomitant]
  6. PREDNISONE TAB [Concomitant]
  7. SYMBICORT [Suspect]
     Dosage: 80/4.5 MCG
     Route: 055

REACTIONS (4)
  - BURNING SENSATION [None]
  - PNEUMONIA [None]
  - PRURITUS [None]
  - ORAL CANDIDIASIS [None]
